FAERS Safety Report 7929936-1 (Version None)
Quarter: 2011Q4

REPORT INFORMATION
  Report Type: 
  Country: None (occurrence: None)
  Receive Date: 20111118
  Receipt Date: 20111118
  Transmission Date: 20120403
  Serious: Yes (Other)
  Sender: FDA-Public Use
  Company Number: None

PATIENT
  Sex: Male
  Weight: 108.8633 kg

DRUGS (2)
  1. EFFIENT [Suspect]
     Indication: CORONARY ARTERIAL STENT INSERTION
     Dosage: 1 DAILY BY MOUTH
     Dates: start: 20111013, end: 20111014
  2. BRILINTA [Suspect]
     Indication: CORONARY ARTERIAL STENT INSERTION
     Dosage: 1 DAILY, BY MOUTH
     Route: 048
     Dates: start: 20111017, end: 20111018

REACTIONS (1)
  - DYSPNOEA [None]
